FAERS Safety Report 22355764 (Version 3)
Quarter: 2023Q4

REPORT INFORMATION
  Report Type: Spontaneous
  Country: US (occurrence: US)
  Receive Date: 20230523
  Receipt Date: 20231010
  Transmission Date: 20240110
  Serious: Yes (Other)
  Sender: FDA-Public Use
  Company Number: US-SUN PHARMACEUTICAL INDUSTRIES LTD-2023R1-388464

PATIENT
  Age: 35 Year
  Sex: Male

DRUGS (4)
  1. RISPERIDONE [Interacting]
     Active Substance: RISPERIDONE
     Indication: Psychotic disorder
     Dosage: UNK (2 MG,NIGHTLY AT BEDTIME)
     Route: 048
  2. RISPERIDONE [Interacting]
     Active Substance: RISPERIDONE
     Dosage: UNK (4 MG, NIGHTLY)
     Route: 048
  3. HYDROXYZINE [Interacting]
     Active Substance: HYDROXYZINE HYDROCHLORIDE
     Indication: Anxiety
     Dosage: 50 MILLIGRAM, QID
     Route: 048
  4. HYDROXYZINE [Interacting]
     Active Substance: HYDROXYZINE HYDROCHLORIDE
     Indication: Insomnia
     Dosage: UNK (50 MILLIGRAM, NIGHTLY)
     Route: 048

REACTIONS (2)
  - Priapism [Recovered/Resolved]
  - Drug interaction [Unknown]
